FAERS Safety Report 10098032 (Version 4)
Quarter: 2014Q3

REPORT INFORMATION
  Report Type: Spontaneous
  Country: JP (occurrence: JP)
  Receive Date: 20140423
  Receipt Date: 20140818
  Transmission Date: 20150326
  Serious: Yes (Other)
  Sender: FDA-Public Use
  Company Number: JP-AMGEN-JPNSP2014028712

PATIENT
  Age: 55 Year
  Sex: Female
  Weight: 42 kg

DRUGS (5)
  1. ALFACALCIDOL [Concomitant]
     Active Substance: ALFACALCIDOL
     Indication: METASTASES TO BONE
     Dosage: 1 MUG, QD
     Route: 048
     Dates: start: 20120509
  2. XELODA [Concomitant]
     Active Substance: CAPECITABINE
     Indication: BREAST CANCER
     Dosage: 1200 MG, BID
     Route: 048
     Dates: start: 20121205
  3. CALCIUM LACTATE [Concomitant]
     Active Substance: CALCIUM LACTATE
     Indication: METASTASES TO BONE
     Dosage: 1 G, TID
     Route: 048
     Dates: start: 20120509
  4. RANMARK [Suspect]
     Active Substance: DENOSUMAB
     Indication: METASTASES TO BONE
     Dosage: 120 MG, QD
     Route: 058
     Dates: start: 20120509, end: 20131016
  5. FENTOS [Concomitant]
     Active Substance: FENTANYL
     Indication: METASTASES TO BONE
     Dosage: 4 MG, QD
     Route: 050
     Dates: start: 20120104

REACTIONS (1)
  - Osteonecrosis of jaw [Not Recovered/Not Resolved]

NARRATIVE: CASE EVENT DATE: 201309
